FAERS Safety Report 18853875 (Version 2)
Quarter: 2021Q2

REPORT INFORMATION
  Report Type: Spontaneous
  Country: FR (occurrence: FR)
  Receive Date: 20210205
  Receipt Date: 20210430
  Transmission Date: 20210717
  Serious: Yes (Other)
  Sender: FDA-Public Use
  Company Number: FR-AMGEN-FRASP2021015461

PATIENT
  Age: 66 Year
  Sex: Male

DRUGS (7)
  1. IRINOTECAN [Concomitant]
     Active Substance: IRINOTECAN
     Dosage: UNK
     Dates: start: 20201231
  2. VECTIBIX [Suspect]
     Active Substance: PANITUMUMAB
     Dosage: 200 MILLIGRAM, Q2WK (14 DAYS)
     Route: 065
     Dates: start: 20210114, end: 202101
  3. VECTIBIX [Suspect]
     Active Substance: PANITUMUMAB
     Dosage: 186 MILLIGRAM, Q2WK (14 DAY)
     Route: 065
     Dates: start: 20201231
  4. VECTIBIX [Suspect]
     Active Substance: PANITUMUMAB
     Dosage: UNK
     Route: 065
     Dates: start: 20201008, end: 2020
  5. VECTIBIX [Suspect]
     Active Substance: PANITUMUMAB
     Dosage: 200 MILLIGRAM
     Route: 065
     Dates: start: 20210128, end: 2021
  6. VECTIBIX [Suspect]
     Active Substance: PANITUMUMAB
     Indication: PRODUCT USED FOR UNKNOWN INDICATION
     Dosage: UNK
     Route: 065
     Dates: start: 20190516, end: 20200219
  7. VECTIBIX [Suspect]
     Active Substance: PANITUMUMAB
     Dosage: 184 MILLIGRAM, Q2WK 14 DAYS
     Route: 065
     Dates: start: 20210211

REACTIONS (2)
  - Oxygen saturation decreased [Recovered/Resolved]
  - Blood pressure decreased [Recovered/Resolved]

NARRATIVE: CASE EVENT DATE: 20210128
